FAERS Safety Report 20629713 (Version 1)
Quarter: 2022Q1

REPORT INFORMATION
  Report Type: Spontaneous
  Country: JP (occurrence: JP)
  Receive Date: 20220323
  Receipt Date: 20220323
  Transmission Date: 20220423
  Serious: Yes (Hospitalization, Other)
  Sender: FDA-Public Use
  Company Number: JP-SCIEGENP-2022SCLIT00222

PATIENT
  Age: 82 Year
  Sex: Male

DRUGS (9)
  1. METFORMIN HYDROCHLORIDE [Suspect]
     Active Substance: METFORMIN HYDROCHLORIDE
     Indication: Type 2 diabetes mellitus
     Route: 065
  2. METFORMIN HYDROCHLORIDE [Suspect]
     Active Substance: METFORMIN HYDROCHLORIDE
     Route: 065
  3. SITAGLIPTIN [Concomitant]
     Active Substance: SITAGLIPTIN
     Route: 065
  4. GLICLAZIDE [Concomitant]
     Active Substance: GLICLAZIDE
     Indication: Type 2 diabetes mellitus
     Route: 065
  5. NOREPINEPHRINE [Concomitant]
     Active Substance: NOREPINEPHRINE
     Indication: Cardiovascular disorder
  6. DEXTROSE [Concomitant]
     Active Substance: DEXTROSE
     Indication: Product used for unknown indication
     Route: 042
  7. thiamine chloride hydrochloride [Concomitant]
     Route: 042
  8. thiamine chloride hydrochloride [Concomitant]
     Dosage: DAY 22 THE DOSE WAS REDUCED TO 100
     Route: 042
  9. thiamine chloride hydrochloride [Concomitant]
     Dosage: DOSE WAS SWITCHED TO 75 MG/DAY ORALLY
     Route: 048

REACTIONS (3)
  - Vitamin B complex deficiency [Unknown]
  - Lactic acidosis [Recovering/Resolving]
  - Cardiac dysfunction [Recovering/Resolving]
